FAERS Safety Report 22050629 (Version 1)
Quarter: 2023Q1

REPORT INFORMATION
  Report Type: Report from Study
  Country: DE (occurrence: DE)
  Receive Date: 20230301
  Receipt Date: 20230301
  Transmission Date: 20230418
  Serious: No
  Sender: FDA-Public Use
  Company Number: DE-TAKEDA-2022TUS083528

PATIENT
  Age: 24 Year
  Sex: Male

DRUGS (8)
  1. TEDUGLUTIDE [Suspect]
     Active Substance: TEDUGLUTIDE
     Indication: Short-bowel syndrome
     Dosage: 4.2 MILLIGRAM, QD
     Route: 042
     Dates: start: 20180921
  2. TEDUGLUTIDE [Suspect]
     Active Substance: TEDUGLUTIDE
     Indication: Short-bowel syndrome
     Dosage: 4.2 MILLIGRAM, QD
     Route: 042
     Dates: start: 20180921
  3. TEDUGLUTIDE [Suspect]
     Active Substance: TEDUGLUTIDE
     Indication: Short-bowel syndrome
     Dosage: 4.2 MILLIGRAM, QD
     Route: 042
     Dates: start: 20180921
  4. TEDUGLUTIDE [Suspect]
     Active Substance: TEDUGLUTIDE
     Indication: Short-bowel syndrome
     Dosage: 4.2 MILLIGRAM, QD
     Route: 042
     Dates: start: 20180921
  5. CHOLESTYRAMINE [Concomitant]
     Active Substance: CHOLESTYRAMINE
     Indication: Diarrhoea
     Dosage: 4 GRAM, QD
     Route: 048
     Dates: start: 20221006
  6. PROPOFOL [Concomitant]
     Active Substance: PROPOFOL
     Indication: Endoscopy
     Dosage: 500 MILLIGRAM
     Route: 042
     Dates: start: 20221006, end: 20221006
  7. PROPOFOL [Concomitant]
     Active Substance: PROPOFOL
     Indication: Colonoscopy
     Dosage: 360 MILLIGRAM
     Route: 042
     Dates: start: 20210827, end: 20210827
  8. PROPOFOL [Concomitant]
     Active Substance: PROPOFOL
     Dosage: 260 UNK
     Route: 042
     Dates: start: 20210825, end: 20210825

REACTIONS (1)
  - Gastric polyps [Recovered/Resolved]

NARRATIVE: CASE EVENT DATE: 20221006
